FAERS Safety Report 7313378-6 (Version None)
Quarter: 2011Q1

REPORT INFORMATION
  Report Type: 
  Country: None (occurrence: None)
  Receive Date: 20110225
  Receipt Date: 20110215
  Transmission Date: 20110831
  Serious: No
  Sender: FDA-Public Use
  Company Number: US-PFIZER INC-2010157052

PATIENT
  Age: 55 Year
  Sex: Male

DRUGS (2)
  1. LYRICA [Suspect]
     Dosage: 50 MG, 2X/DAY
     Route: 048
  2. LYRICA [Suspect]
     Indication: POST HERPETIC NEURALGIA
     Dosage: 75 MG, 2X/DAY
     Route: 048

REACTIONS (2)
  - DYSARTHRIA [None]
  - TREMOR [None]
